FAERS Safety Report 4281480-1 (Version None)
Quarter: 2004Q1

REPORT INFORMATION
  Report Type: 
  Country: None (occurrence: None)
  Receive Date: 20040112
  Receipt Date: 20031121
  Transmission Date: 20041129
  Serious: Yes (Other)
  Sender: FDA-Public Use
  Company Number: 352517

PATIENT
  Age: 36 Year
  Sex: Male

DRUGS (2)
  1. FUZEON [Suspect]
     Indication: DRUG USE FOR UNKNOWN INDICATION
     Dosage: 90 MG 2 PER DAY, SUBCUTANEOUS
     Route: 058
     Dates: start: 20031113
  2. ANTIRETROVIRALS (ANTIRETROVIRALS) [Concomitant]

REACTIONS (9)
  - ADVERSE EVENT [None]
  - ASTHENIA [None]
  - DERMATITIS [None]
  - FATIGUE [None]
  - INJECTION SITE DERMATITIS [None]
  - INJECTION SITE PAIN [None]
  - INJECTION SITE VESICLES [None]
  - MEDICATION ERROR [None]
  - PAIN IN EXTREMITY [None]
